FAERS Safety Report 13256196 (Version 1)
Quarter: 2017Q1

REPORT INFORMATION
  Report Type: Spontaneous
  Country: US (occurrence: US)
  Receive Date: 20170221
  Receipt Date: 20170221
  Transmission Date: 20170428
  Serious: Yes (Other)
  Sender: FDA-Public Use
  Company Number: US-GLAXOSMITHKLINE-US2017022673

PATIENT
  Sex: Female

DRUGS (1)
  1. TUMS ULTRA [Suspect]
     Active Substance: CALCIUM CARBONATE
     Indication: ULCER HAEMORRHAGE
     Dosage: FOUR TIMES DAILY

REACTIONS (2)
  - Coeliac disease [Unknown]
  - Product use issue [Unknown]
